FAERS Safety Report 5750981-9 (Version None)
Quarter: 2008Q2

REPORT INFORMATION
  Report Type: 
  Country: None (occurrence: None)
  Receive Date: 20080528
  Receipt Date: 20080521
  Transmission Date: 20081010
  Serious: Yes (Life-Threatening)
  Sender: FDA-Public Use
  Company Number: ZA-GILEAD-2008-0016207

PATIENT
  Sex: Female
  Weight: 58 kg

DRUGS (5)
  1. TRUVADA [Suspect]
     Indication: HIV INFECTION
     Route: 048
     Dates: start: 20080204, end: 20080401
  2. TRUVADA [Suspect]
     Route: 048
     Dates: start: 20080501
  3. NEVIRAPINE [Suspect]
     Indication: HIV INFECTION
     Route: 048
     Dates: start: 20080205, end: 20080401
  4. BACTRIM [Concomitant]
     Indication: PROPHYLAXIS
     Dates: start: 20070301, end: 20080401
  5. ALUVIA [Concomitant]
     Indication: HIV INFECTION
     Dates: start: 20080501

REACTIONS (1)
  - HEPATOTOXICITY [None]
